FAERS Safety Report 18229251 (Version 1)
Quarter: 2020Q3

REPORT INFORMATION
  Report Type: Spontaneous
  Country: FR (occurrence: FR)
  Receive Date: 20200903
  Receipt Date: 20200903
  Transmission Date: 20201103
  Serious: Yes (Life-Threatening)
  Sender: FDA-Public Use
  Company Number: FR-TEVA-2020-FR-1822228

PATIENT
  Age: 76 Year
  Sex: Female
  Weight: 54 kg

DRUGS (14)
  1. JAKAVI 20 MG, COMPRIME [Suspect]
     Active Substance: RUXOLITINIB PHOSPHATE
     Indication: MYELOFIBROSIS
     Dosage: 2 DOSAGE FORMS
     Route: 048
     Dates: start: 201607
  2. VERCYTE [Suspect]
     Active Substance: PIPOBROMAN
     Indication: POLYCYTHAEMIA VERA
     Route: 048
     Dates: start: 201307, end: 201605
  3. XAGRID 0,5 MG, GELULE [Suspect]
     Active Substance: ANAGRELIDE HYDROCHLORIDE
     Indication: POLYCYTHAEMIA VERA
     Dosage: UNKNOWN
     Route: 048
     Dates: start: 201307, end: 201605
  4. HYDREA [Suspect]
     Active Substance: HYDROXYUREA
     Indication: POLYCYTHAEMIA VERA
     Dosage: UNKNOWN
     Route: 048
     Dates: start: 200605, end: 201307
  5. PRAVASTATINE SODIQUE [Suspect]
     Active Substance: PRAVASTATIN SODIUM
     Indication: DYSLIPIDAEMIA
     Dosage: 10 MG
     Route: 048
  6. MONOPROST 50 MICROGRAMMES/ML, COLLYRE EN SOLUTION EN RECIPIENT UNIDOSE [Suspect]
     Active Substance: LATANOPROST
     Indication: INTRAOCULAR PRESSURE TEST
     Dosage: UNKNOWN
     Route: 047
  7. PREVISCAN 20 MG, COMPRIME SECABLE [Suspect]
     Active Substance: FLUINDIONE
     Indication: THROMBOSIS PROPHYLAXIS
     Dosage: 1  DOSAGE FORMS, ACCORDING TO INR
     Route: 048
  8. NEBIVOLOL. [Suspect]
     Active Substance: NEBIVOLOL
     Indication: HYPERTENSION
     Dosage: 5 MG
     Route: 048
  9. LERCAN 10 MG, COMPRIME PELLICULE SECABLE [Suspect]
     Active Substance: LERCANIDIPINE HYDROCHLORIDE
     Indication: HYPERTENSION
     Dosage: 1 DOSAGE FORMS
     Route: 048
  10. RETACRIT [Suspect]
     Active Substance: EPOETIN ALFA-EPBX
     Indication: ANAEMIA
     Dosage: 4000 IU
     Route: 058
  11. HYPERIUM [Suspect]
     Active Substance: RILMENIDINE PHOSPHATE
     Indication: HYPERTENSION
     Dosage: UNKNOWN
     Route: 048
  12. LEVOTHYROX 75 MICROGRAMMES, COMPRIME SECABLE [Suspect]
     Active Substance: LEVOTHYROXINE SODIUM
     Indication: THYROID MASS
     Dosage: 1 DOSAGE FORMS
     Route: 048
  13. SERESTA [Suspect]
     Active Substance: OXAZEPAM
     Indication: ANXIETY
     Dosage: UNKNOWN
     Route: 048
  14. EUPRESSYL 60 MG, GELULE [Suspect]
     Active Substance: URAPIDIL
     Indication: HYPERTENSION
     Dosage: UNKNOWN
     Route: 048

REACTIONS (1)
  - Adenocarcinoma metastatic [Not Recovered/Not Resolved]

NARRATIVE: CASE EVENT DATE: 202004
